FAERS Safety Report 10483037 (Version 1)
Quarter: 2014Q3

REPORT INFORMATION
  Report Type: Report from Study
  Country: ES (occurrence: ES)
  Receive Date: 20140930
  Receipt Date: 20140930
  Transmission Date: 20150326
  Serious: Yes (Other)
  Sender: FDA-Public Use
  Company Number: ES-AMGEN-ESPSP2014074129

PATIENT
  Sex: Female

DRUGS (1)
  1. PROLIA [Suspect]
     Active Substance: DENOSUMAB
     Indication: OSTEOPOROSIS POSTMENOPAUSAL
     Route: 065

REACTIONS (7)
  - Body height decreased [Unknown]
  - Back pain [Unknown]
  - Activities of daily living impaired [Unknown]
  - Surgery [Unknown]
  - Groin pain [Unknown]
  - Immobile [Unknown]
  - Hypertension [Unknown]
